FAERS Safety Report 6274991-0 (Version None)
Quarter: 2009Q3

REPORT INFORMATION
  Report Type: 
  Country: None (occurrence: None)
  Receive Date: 20090721
  Receipt Date: 20071009
  Transmission Date: 20100115
  Serious: Yes (Other)
  Sender: FDA-Public Use
  Company Number: US-ASTRAZENECA-2006UW27557

PATIENT
  Age: 68 Year
  Sex: Male
  Weight: 98.4 kg

DRUGS (11)
  1. SEROQUEL [Suspect]
     Indication: ANXIETY
     Route: 048
     Dates: start: 19980101, end: 20050101
  2. SEROQUEL [Suspect]
     Indication: DEPRESSION
     Route: 048
     Dates: start: 19980101, end: 20050101
  3. SEROQUEL [Suspect]
     Route: 048
     Dates: start: 19980914
  4. SEROQUEL [Suspect]
     Route: 048
     Dates: start: 19980914
  5. GEODON [Concomitant]
  6. THORAZINE [Concomitant]
  7. ZYPREXA/SYMBYAX (OLANZAPINE) [Concomitant]
     Dates: start: 20051201
  8. ZOLOFT [Concomitant]
     Dates: start: 20051201
  9. COZAAR [Concomitant]
     Dates: start: 20051201
  10. AMBIEN [Concomitant]
     Indication: SLEEP DISORDER
     Dates: start: 20051201
  11. DEPAKOTE [Concomitant]
     Dates: start: 19980914

REACTIONS (3)
  - DIABETES MELLITUS [None]
  - DIABETIC NEUROPATHY [None]
  - TYPE 2 DIABETES MELLITUS [None]
